FAERS Safety Report 15837331 (Version 1)
Quarter: 2019Q1

REPORT INFORMATION
  Report Type: Spontaneous
  Country: US (occurrence: None)
  Receive Date: 20190115
  Receipt Date: 20190115
  Transmission Date: 20190417
  Serious: Yes (Hospitalization)
  Sender: FDA-Public Use
  Company Number: DL2018-016

PATIENT
  Age: 27 Year
  Sex: Female

DRUGS (2)
  1. MIFEPRISTONE TABLETS, 200 MG (DANCO LABS) [Suspect]
     Active Substance: MIFEPRISTONE
     Indication: ABORTION INDUCED
     Route: 048
     Dates: start: 20180921
  2. MISOPROSTOL TABLETS, 200 MCG [Suspect]
     Active Substance: MISOPROSTOL
     Route: 067
     Dates: start: 20180922, end: 20180928

REACTIONS (5)
  - Procedural dizziness [None]
  - Exposure during pregnancy [None]
  - Abortion incomplete [None]
  - Haemoglobin decreased [None]
  - Post abortion haemorrhage [None]

NARRATIVE: CASE EVENT DATE: 20181024
